FAERS Safety Report 18185966 (Version 1)
Quarter: 2020Q3

REPORT INFORMATION
  Report Type: Spontaneous
  Country: DE (occurrence: DE)
  Receive Date: 20200824
  Receipt Date: 20200824
  Transmission Date: 20201103
  Serious: Yes (Other)
  Sender: FDA-Public Use
  Company Number: DE-ALLERGAN-2031363US

PATIENT
  Age: 22 Year
  Sex: Female
  Weight: 65 kg

DRUGS (5)
  1. DOMINAL (PROTHIPENDYL HYDROCHLORIDE) [Suspect]
     Active Substance: PROTHIPENDYL HYDROCHLORIDE
     Indication: PRODUCT USED FOR UNKNOWN INDICATION
     Dosage: 50 DF
     Route: 048
     Dates: start: 20121007
  2. ASENAPINE MALEATE ? BP [Suspect]
     Active Substance: ASENAPINE MALEATE
     Indication: PRODUCT USED FOR UNKNOWN INDICATION
     Route: 048
  3. BUSCOPAN [Suspect]
     Active Substance: BUTYLSCOPOLAMINE BROMIDE
     Indication: PRODUCT USED FOR UNKNOWN INDICATION
     Route: 048
  4. CIPRALEX [Suspect]
     Active Substance: ESCITALOPRAM OXALATE
     Indication: PRODUCT USED FOR UNKNOWN INDICATION
     Dosage: 28 DF
     Route: 048
     Dates: start: 20121007
  5. DIPIPERON [Suspect]
     Active Substance: PIPAMPERONE
     Indication: PRODUCT USED FOR UNKNOWN INDICATION
     Dosage: 40 DF
     Route: 048
     Dates: start: 20121007, end: 20121007

REACTIONS (9)
  - Intentional overdose [Unknown]
  - Somnolence [Recovered/Resolved]
  - Depression [Recovered/Resolved]
  - Aspiration [Recovered/Resolved]
  - Pneumonia aspiration [Recovered/Resolved]
  - Generalised tonic-clonic seizure [Recovered/Resolved]
  - Tachycardia [Recovered/Resolved]
  - Intestinal atony [Recovered/Resolved]
  - Suicide attempt [Recovered/Resolved]

NARRATIVE: CASE EVENT DATE: 20121007
